FAERS Safety Report 15653861 (Version 1)
Quarter: 2018Q4

REPORT INFORMATION
  Report Type: Spontaneous
  Country: JP (occurrence: JP)
  Receive Date: 20181124
  Receipt Date: 20181124
  Transmission Date: 20190205
  Serious: Yes (Hospitalization)
  Sender: FDA-Public Use
  Company Number: JP-CELGENEUS-JPN-20181105920

PATIENT
  Age: 39 Year

DRUGS (2)
  1. ABRAXANE [Suspect]
     Active Substance: PACLITAXEL
     Indication: GASTRIC CANCER
     Route: 041
  2. CYRAMZA [Concomitant]
     Active Substance: RAMUCIRUMAB
     Indication: GASTRIC CANCER
     Route: 041

REACTIONS (1)
  - Leukoencephalopathy [Unknown]
